FAERS Safety Report 8001265 (Version 5)
Quarter: 2013Q4

REPORT INFORMATION
  Report Type: Spontaneous
  Country: US (occurrence: US)
  Receive Date: 20110621
  Receipt Date: 20131113
  Transmission Date: 20140711
  Serious: Yes (Other)
  Sender: FDA-Public Use
  Company Number: US-ROCHE-765845

PATIENT
  Age: 21 Year
  Sex: Female
  Weight: 56.7 kg

DRUGS (3)
  1. ACCUTANE [Suspect]
     Indication: ACNE
     Route: 065
     Dates: start: 19990302, end: 19990411
  2. ACCUTANE [Suspect]
     Route: 065
     Dates: start: 20010318, end: 200106
  3. SYNTHROID [Concomitant]

REACTIONS (6)
  - Colitis ulcerative [Unknown]
  - Inflammatory bowel disease [Unknown]
  - Intestinal haemorrhage [Unknown]
  - Stress [Unknown]
  - Iron deficiency anaemia [Unknown]
  - Diverticulitis [Unknown]
